FAERS Safety Report 5125920-4 (Version None)
Quarter: 2006Q4

REPORT INFORMATION
  Report Type: 
  Country: None (occurrence: None)
  Receive Date: 20061012
  Receipt Date: 20060921
  Transmission Date: 20070319
  Serious: Yes (Other)
  Sender: FDA-Public Use
  Company Number: BR-AVENTIS-200619989GDDC

PATIENT
  Age: 1 Year
  Sex: Male
  Weight: 10 kg

DRUGS (2)
  1. FLAGYL [Suspect]
     Indication: DIARRHOEA
     Dosage: DOSE: 2.5 ML
     Route: 048
     Dates: start: 20060920, end: 20060921
  2. DEPAKENE [Concomitant]
     Indication: CONVULSION
     Route: 048
     Dates: start: 20060401

REACTIONS (2)
  - BRAIN DAMAGE [None]
  - CONVULSION [None]
